FAERS Safety Report 7348833-6 (Version None)
Quarter: 2011Q1

REPORT INFORMATION
  Report Type: 
  Country: None (occurrence: None)
  Receive Date: 20110314
  Receipt Date: 20110309
  Transmission Date: 20110831
  Serious: Yes (Other)
  Sender: FDA-Public Use
  Company Number: CA-ABBOTT-11P-028-0710689-00

PATIENT
  Age: 54 Year
  Sex: Male

DRUGS (20)
  1. LAMIVUDINE [Suspect]
     Indication: PRODUCT USED FOR UNKNOWN INDICATION
  2. LAMIVUDINE [Suspect]
  3. REYATAZ [Suspect]
     Indication: PRODUCT USED FOR UNKNOWN INDICATION
  4. REYATAZ [Suspect]
  5. SAQUINAVIR [Suspect]
     Indication: PRODUCT USED FOR UNKNOWN INDICATION
  6. ZIDOVUDINE [Suspect]
     Indication: PRODUCT USED FOR UNKNOWN INDICATION
  7. CRIXIVAN [Suspect]
     Indication: PRODUCT USED FOR UNKNOWN INDICATION
     Route: 048
  8. FUZEON [Suspect]
     Indication: PRODUCT USED FOR UNKNOWN INDICATION
     Dosage: POWDER FOR SOLUTION
     Route: 058
  9. VIDEX [Suspect]
  10. LAMIVUDINE [Suspect]
  11. VIRAMUNE [Suspect]
     Indication: PRODUCT USED FOR UNKNOWN INDICATION
  12. RITONAVIR [Suspect]
     Indication: PRODUCT USED FOR UNKNOWN INDICATION
  13. VIDEX [Suspect]
  14. VIRAMUNE [Suspect]
  15. VIREAD [Suspect]
     Indication: PRODUCT USED FOR UNKNOWN INDICATION
  16. ZERIT [Suspect]
     Indication: PRODUCT USED FOR UNKNOWN INDICATION
  17. VIDEX [Suspect]
     Indication: PRODUCT USED FOR UNKNOWN INDICATION
  18. VIRAMUNE [Suspect]
  19. ZIAGEN [Suspect]
     Indication: PRODUCT USED FOR UNKNOWN INDICATION
  20. KALETRA [Suspect]
     Indication: PRODUCT USED FOR UNKNOWN INDICATION

REACTIONS (7)
  - DYSPHAGIA [None]
  - LIPODYSTROPHY ACQUIRED [None]
  - BLOOD LACTIC ACID INCREASED [None]
  - DIPLOPIA [None]
  - EYELID PTOSIS [None]
  - PROGRESSIVE EXTERNAL OPHTHALMOPLEGIA [None]
  - MITOCHONDRIAL TOXICITY [None]
